FAERS Safety Report 8202811 (Version 5)
Quarter: 2014Q2

REPORT INFORMATION
  Report Type: Spontaneous
  Country: US (occurrence: US)
  Receive Date: 20111027
  Receipt Date: 20140522
  Transmission Date: 20141212
  Serious: Yes (Hospitalization, Disabling, Other)
  Sender: FDA-Public Use
  Company Number: US-ASTRAZENECA-2011SE62670

PATIENT
  Age: 55 Year
  Sex: Female
  Weight: 52.2 kg

DRUGS (45)
  1. NEXIUM [Suspect]
     Indication: GASTROOESOPHAGEAL REFLUX DISEASE
     Route: 048
     Dates: end: 2012
  2. NEXIUM [Suspect]
     Indication: GASTRIC ULCER
     Route: 048
     Dates: end: 2012
  3. NEXIUM [Suspect]
     Indication: DYSPEPSIA
     Route: 048
     Dates: end: 2012
  4. NEXIUM [Suspect]
     Indication: GASTRIC DISORDER
     Route: 048
     Dates: end: 2012
  5. NEXIUM [Suspect]
     Indication: GASTROOESOPHAGEAL REFLUX DISEASE
     Dosage: DAILY
     Route: 048
     Dates: start: 2002, end: 2011
  6. NEXIUM [Suspect]
     Indication: GASTRIC ULCER
     Dosage: DAILY
     Route: 048
     Dates: start: 2002, end: 2011
  7. NEXIUM [Suspect]
     Indication: DYSPEPSIA
     Dosage: DAILY
     Route: 048
     Dates: start: 2002, end: 2011
  8. NEXIUM [Suspect]
     Indication: GASTRIC DISORDER
     Dosage: DAILY
     Route: 048
     Dates: start: 2002, end: 2011
  9. NEXIUM [Suspect]
     Indication: GASTROOESOPHAGEAL REFLUX DISEASE
     Route: 048
     Dates: start: 2004, end: 2012
  10. NEXIUM [Suspect]
     Indication: GASTRIC ULCER
     Route: 048
     Dates: start: 2004, end: 2012
  11. NEXIUM [Suspect]
     Indication: DYSPEPSIA
     Route: 048
     Dates: start: 2004, end: 2012
  12. NEXIUM [Suspect]
     Indication: GASTRIC DISORDER
     Route: 048
     Dates: start: 2004, end: 2012
  13. NEXIUM [Suspect]
     Indication: GASTROOESOPHAGEAL REFLUX DISEASE
     Route: 048
     Dates: start: 20051012
  14. NEXIUM [Suspect]
     Indication: GASTRIC ULCER
     Route: 048
     Dates: start: 20051012
  15. NEXIUM [Suspect]
     Indication: DYSPEPSIA
     Route: 048
     Dates: start: 20051012
  16. NEXIUM [Suspect]
     Indication: GASTRIC DISORDER
     Route: 048
     Dates: start: 20051012
  17. NEXIUM [Suspect]
     Indication: GASTROOESOPHAGEAL REFLUX DISEASE
     Route: 048
     Dates: start: 2006
  18. NEXIUM [Suspect]
     Indication: GASTRIC ULCER
     Route: 048
     Dates: start: 2006
  19. NEXIUM [Suspect]
     Indication: DYSPEPSIA
     Route: 048
     Dates: start: 2006
  20. NEXIUM [Suspect]
     Indication: GASTRIC DISORDER
     Route: 048
     Dates: start: 2006
  21. NEXIUM [Suspect]
     Indication: GASTROOESOPHAGEAL REFLUX DISEASE
     Route: 048
     Dates: start: 20110510
  22. NEXIUM [Suspect]
     Indication: GASTRIC ULCER
     Route: 048
     Dates: start: 20110510
  23. NEXIUM [Suspect]
     Indication: DYSPEPSIA
     Route: 048
     Dates: start: 20110510
  24. NEXIUM [Suspect]
     Indication: GASTRIC DISORDER
     Route: 048
     Dates: start: 20110510
  25. PRILOSEC OTC [Suspect]
     Indication: GASTRIC DISORDER
     Route: 048
     Dates: start: 2002
  26. ZYMBALTA [Concomitant]
     Indication: PAIN
     Route: 048
     Dates: start: 2001
  27. TUMS [Concomitant]
     Indication: GASTROOESOPHAGEAL REFLUX DISEASE
     Dates: start: 2000, end: 2006
  28. ACIPHEX [Concomitant]
     Dates: start: 20030312
  29. ZANTAC [Concomitant]
  30. TAGAMET [Concomitant]
  31. PEPCID OTC [Concomitant]
  32. MILK OF MAGNESIA [Concomitant]
     Indication: GASTROOESOPHAGEAL REFLUX DISEASE
     Dates: start: 2000, end: 2006
  33. CYMBALTA [Concomitant]
     Indication: DEPRESSION
  34. WELLBUTRIN [Concomitant]
     Indication: DEPRESSION
  35. HYDROCHLORIDE [Concomitant]
     Indication: OEDEMA
  36. CLONAZEPAM [Concomitant]
     Indication: ANXIETY
     Dates: start: 20110323
  37. MULTIVITAMINS [Concomitant]
  38. LEXAPRO [Concomitant]
  39. HISTAMINE RECEPTORS [Concomitant]
  40. SPIRONOLACTONE [Concomitant]
     Dates: start: 20070410
  41. LEVOTHYROXINE [Concomitant]
     Dates: start: 20090824
  42. PREDNISONE [Concomitant]
     Dates: start: 20100616
  43. ROPINIROLE HCL [Concomitant]
     Dates: start: 20110326
  44. OXYCONTIN [Concomitant]
     Dates: start: 20110625
  45. ZOLOFT [Concomitant]
     Dates: start: 20030113

REACTIONS (20)
  - Spinal fracture [Unknown]
  - Carpal tunnel syndrome [Unknown]
  - Arthropathy [Unknown]
  - Joint injury [Unknown]
  - Cervicobrachial syndrome [Unknown]
  - Renal disorder [Unknown]
  - Rib fracture [Unknown]
  - Foot fracture [Unknown]
  - Fall [Unknown]
  - Limb discomfort [Unknown]
  - Osteoporosis [Unknown]
  - Bone disorder [Unknown]
  - Arthritis [Unknown]
  - Rotator cuff syndrome [Unknown]
  - Spinal osteoarthritis [Unknown]
  - Hypothyroidism [Unknown]
  - Anxiety [Unknown]
  - Limb injury [Unknown]
  - Arthralgia [Unknown]
  - Depression [Unknown]
